FAERS Safety Report 8618442-7 (Version None)
Quarter: 2012Q3

REPORT INFORMATION
  Report Type: 
  Country: None (occurrence: None)
  Receive Date: 20120824
  Receipt Date: 20120820
  Transmission Date: 20120928
  Serious: No
  Sender: FDA-Public Use
  Company Number: US-009507513-1208USA008730

PATIENT

DRUGS (2)
  1. PEG-INTRON [Suspect]
     Dosage: UNK
     Route: 058
     Dates: start: 20120817, end: 20120819
  2. REBETOL [Suspect]

REACTIONS (6)
  - ABDOMINAL PAIN [None]
  - MUSCLE SPASMS [None]
  - ORAL MUCOSAL BLISTERING [None]
  - VOMITING [None]
  - LIP BLISTER [None]
  - NAUSEA [None]
